FAERS Safety Report 22116676 (Version 1)
Quarter: 2023Q1

REPORT INFORMATION
  Report Type: Report from Study
  Country: FI (occurrence: FI)
  Receive Date: 20230320
  Receipt Date: 20230320
  Transmission Date: 20230418
  Serious: Yes (Other)
  Sender: FDA-Public Use
  Company Number: FI-MYLANLABS-2023M1029808

PATIENT
  Sex: Female

DRUGS (2)
  1. CLOZAPINE [Suspect]
     Active Substance: CLOZAPINE
     Indication: Schizophrenia
     Dosage: 100 MILLIGRAM, QD
     Route: 065
     Dates: start: 2001
  2. FLUOXETINE [Concomitant]
     Active Substance: FLUOXETINE HYDROCHLORIDE
     Dosage: 20 MILLIGRAM, QD(MORNING)
     Route: 065

REACTIONS (4)
  - Malignant melanoma [Unknown]
  - Pleural fluid analysis [Unknown]
  - Eosinophil count [Unknown]
  - Off label use [Unknown]

NARRATIVE: CASE EVENT DATE: 20220101
